FAERS Safety Report 5958150-4 (Version None)
Quarter: 2008Q4

REPORT INFORMATION
  Report Type: 
  Country: None (occurrence: None)
  Receive Date: 20081117
  Receipt Date: 20081110
  Transmission Date: 20090506
  Serious: Yes (Disabling)
  Sender: FDA-Public Use
  Company Number: APP200800564

PATIENT
  Age: 29 Year
  Sex: Male

DRUGS (3)
  1. BUPIVACAINE HYDROCHLORIDE AND EPINEPHRINE [Suspect]
     Indication: MUSCULOSKELETAL PAIN
     Dosage: 0.5% CONTINUOUS VIA PAIN PUMP, INTRA-ARTICULAR
     Route: 014
     Dates: start: 20040302
  2. MARCAINE [Suspect]
     Indication: MUSCULOSKELETAL PAIN
     Dosage: 20 ML, 0.5%, INTRA-ARTICULAR
     Route: 014
     Dates: start: 20040302, end: 20040302
  3. BREG PAIN PUMP PAIN CARE 3000 [Suspect]
     Indication: MUSCULOSKELETAL PAIN
     Dates: start: 20040302

REACTIONS (5)
  - CHONDROLYSIS [None]
  - CYST [None]
  - MUSCULOSKELETAL PAIN [None]
  - MUSCULOSKELETAL STIFFNESS [None]
  - OSTEOARTHRITIS [None]
